FAERS Safety Report 13209862 (Version 1)
Quarter: 2017Q1

REPORT INFORMATION
  Report Type: Spontaneous
  Country: CA (occurrence: CA)
  Receive Date: 20170210
  Receipt Date: 20170210
  Transmission Date: 20170428
  Serious: Yes (Hospitalization)
  Sender: FDA-Public Use
  Company Number: CA-SCIEGEN PHARMACEUTICALS INC-2017SCILIT00073

PATIENT
  Age: 94 Year
  Sex: Female

DRUGS (10)
  1. HYDROMORPHONE IR [Suspect]
     Active Substance: HYDROMORPHONE HYDROCHLORIDE
     Dosage: 1 MG, Q4H
     Route: 048
  2. HYDROMORPHONE [Suspect]
     Active Substance: HYDROMORPHONE
     Indication: PAIN
     Dosage: UNKNOWN
     Route: 065
  3. DULOXETINE. [Suspect]
     Active Substance: DULOXETINE
     Dosage: 30 MG, QD
  4. GABAPENTIN TABLETS,USP [Suspect]
     Active Substance: GABAPENTIN
     Indication: BACK PAIN
     Dosage: UNKNOWN
     Route: 065
  5. HYDROMORPHONE IR [Suspect]
     Active Substance: HYDROMORPHONE HYDROCHLORIDE
     Indication: PAIN MANAGEMENT
     Dosage: 1 MG, Q4H, PRN
     Route: 048
  6. HYDROMORPH CONTIN [Suspect]
     Active Substance: HYDROMORPHONE
     Dosage: 6 MG, BID
     Route: 048
  7. DULOXETINE. [Suspect]
     Active Substance: DULOXETINE
     Indication: PAIN MANAGEMENT
     Dosage: 30 MG, QD
     Route: 048
  8. HYDROMORPH CONTIN [Suspect]
     Active Substance: HYDROMORPHONE
     Indication: PAIN MANAGEMENT
     Dosage: UNKNOWN
  9. PREGABALIN. [Suspect]
     Active Substance: PREGABALIN
     Indication: PAIN MANAGEMENT
     Dosage: UNKNOWN
     Route: 065
  10. HYDROMORPHONE [Suspect]
     Active Substance: HYDROMORPHONE
     Dosage: INCREASED DOSES
     Route: 065

REACTIONS (9)
  - Drug ineffective [None]
  - Crying [Unknown]
  - Off label use [None]
  - Screaming [Recovering/Resolving]
  - Confusional state [Unknown]
  - Sedation [Unknown]
  - Back pain [Recovering/Resolving]
  - Spinal column stenosis [Unknown]
  - Intervertebral disc protrusion [Unknown]
